FAERS Safety Report 13582857 (Version 6)
Quarter: 2017Q3

REPORT INFORMATION
  Report Type: Spontaneous
  Country: KR (occurrence: KR)
  Receive Date: 20170525
  Receipt Date: 20170824
  Transmission Date: 20171127
  Serious: Yes (Hospitalization, Other)
  Sender: FDA-Public Use
  Company Number: KR-009507513-1705KOR011856

PATIENT
  Age: 55 Year
  Sex: Female
  Weight: 53.7 kg

DRUGS (47)
  1. CISPLATIN. [Concomitant]
     Active Substance: CISPLATIN
     Indication: MALIGNANT NEOPLASM OF RENAL PELVIS
     Dosage: 97 MG, ONCE (CYCLE 3) (STRENGTH: 50MG/100ML)
     Route: 042
     Dates: start: 20161119, end: 20161119
  2. METHOTREXATE. [Concomitant]
     Active Substance: METHOTREXATE
     Dosage: 48.5MG, TID (CYCLE 3)
     Route: 042
     Dates: start: 20161123, end: 20161123
  3. METHOTREXATE. [Concomitant]
     Active Substance: METHOTREXATE
     Dosage: 48.5MG, TID (CYCLE 4)
     Route: 042
     Dates: start: 20161221, end: 20161221
  4. METHOTREXATE. [Concomitant]
     Active Substance: METHOTREXATE
     Dosage: 48.5MG, QD (CYCLE 4)
     Route: 042
     Dates: start: 20161222, end: 20170106
  5. METHOTREXATE. [Concomitant]
     Active Substance: METHOTREXATE
     Dosage: 49MG, TID (CYCLE 5)
     Route: 042
     Dates: start: 20170203, end: 20170203
  6. VELBASTINE [Concomitant]
     Dosage: 4.8 MG, QD (CYCLE 3)
     Route: 042
     Dates: start: 20161124, end: 20161209
  7. VELBASTINE [Concomitant]
     Dosage: 4.8 MG, TID (CYCLE 4)
     Route: 042
     Dates: start: 20161221, end: 20161221
  8. VELBASTINE [Concomitant]
     Dosage: 4.8 MG, QD (CYCLE 4)
     Route: 042
     Dates: start: 20161222, end: 20170106
  9. EMEND (FOSAPREPITANT DIMEGLUMINE) [Suspect]
     Active Substance: FOSAPREPITANT DIMEGLUMINE
     Indication: PROPHYLAXIS OF NAUSEA AND VOMITING
     Dosage: 150 MG, ONCE
     Route: 042
     Dates: start: 20160923, end: 20160923
  10. VELBASTINE [Concomitant]
     Dosage: 4.8 MG, QD (CYCLE 3)
     Route: 042
     Dates: start: 20161120, end: 20161123
  11. VELBASTINE [Concomitant]
     Dosage: 4.8 MG, TID (CYCLE 3)
     Route: 042
     Dates: start: 20161209, end: 20161209
  12. VELBASTINE [Concomitant]
     Dosage: 4.8 MG, TID (CYCLE 4)
     Route: 042
     Dates: start: 20161217, end: 20161217
  13. VELBASTINE [Concomitant]
     Dosage: 4.8 MG, QD (CYCLE 4)
     Route: 042
     Dates: start: 20161218, end: 20161221
  14. VELBASTINE [Concomitant]
     Dosage: 4.8 MG, QD (CYCLE 5)
     Route: 042
     Dates: start: 20170114, end: 20170203
  15. DEXAMETHASONE. [Concomitant]
     Active Substance: DEXAMETHASONE
     Indication: PROPHYLAXIS
     Dosage: 8 MG, QD
     Route: 048
     Dates: start: 20161120, end: 20161122
  16. MEGACE [Concomitant]
     Active Substance: MEGESTROL ACETATE
     Indication: PROPHYLAXIS
     Dosage: 1 PK, QD
     Route: 048
     Dates: start: 20160924
  17. CISPLATIN. [Concomitant]
     Active Substance: CISPLATIN
     Dosage: 97 MG, ONCE (CYCLE 4) (STRENGTH: 50MG/100ML)
     Route: 042
     Dates: start: 20161217, end: 20161217
  18. METHOTREXATE. [Concomitant]
     Active Substance: METHOTREXATE
     Indication: MALIGNANT NEOPLASM OF RENAL PELVIS
     Dosage: 48.5MG, TID (CYCLE 3)
     Route: 042
     Dates: start: 20161118, end: 20161118
  19. METHOTREXATE. [Concomitant]
     Active Substance: METHOTREXATE
     Dosage: 48.5MG, TID (CYCLE 3)
     Route: 042
     Dates: start: 20161209, end: 20161209
  20. METHOTREXATE. [Concomitant]
     Active Substance: METHOTREXATE
     Dosage: 48.5MG, QD (CYCLE 4)
     Route: 042
     Dates: start: 20161217, end: 20161221
  21. METHOTREXATE. [Concomitant]
     Active Substance: METHOTREXATE
     Dosage: 49 MG, QD (CYCLE 5)
     Route: 042
     Dates: start: 20170114, end: 20170118
  22. VELBASTINE [Concomitant]
     Dosage: 4.8 MG, TID (CYCLE 3)
     Route: 042
     Dates: start: 20161123, end: 20161123
  23. SANCUSO [Concomitant]
     Active Substance: GRANISETRON
     Indication: PREMEDICATION
     Dosage: 1 PK, QD (STRENGTH: 80.2X66.6MM2), ROUTE REPORTED AS PATCH
     Dates: start: 20161117, end: 20161119
  24. EMEND (FOSAPREPITANT DIMEGLUMINE) [Suspect]
     Active Substance: FOSAPREPITANT DIMEGLUMINE
     Dosage: 150 MG, ONCE
     Route: 042
     Dates: start: 20161119, end: 20161119
  25. METHOTREXATE. [Concomitant]
     Active Substance: METHOTREXATE
     Dosage: 48.5MG, TID (CYCLE 4)
     Route: 042
     Dates: start: 20170106, end: 20170106
  26. METHOTREXATE. [Concomitant]
     Active Substance: METHOTREXATE
     Dosage: 49MG, QD (CYCLE 5)
     Route: 042
     Dates: start: 20170119, end: 20170203
  27. SANCUSO [Concomitant]
     Active Substance: GRANISETRON
     Dosage: 1 PK, QD (STRENGTH: 80.2X66.6MM2), ROUTE REPORTED AS PATCH
     Dates: start: 20161215, end: 20161217
  28. EMEND (FOSAPREPITANT DIMEGLUMINE) [Suspect]
     Active Substance: FOSAPREPITANT DIMEGLUMINE
     Dosage: 150 MG, ONCE
     Route: 042
     Dates: start: 20161217, end: 20161217
  29. DOXORUBICIN HYDROCHLORIDE. [Concomitant]
     Active Substance: DOXORUBICIN HYDROCHLORIDE
     Dosage: 48 MG, ONCE (CYCLE 4) (STRENGTH: 50MG/25ML)
     Route: 042
     Dates: start: 20161217, end: 20161217
  30. VELBASTINE [Concomitant]
     Indication: MALIGNANT NEOPLASM OF RENAL PELVIS
     Dosage: 4.8 MG, TID (CYCLE 3)
     Route: 042
     Dates: start: 20161119, end: 20161119
  31. VELBASTINE [Concomitant]
     Dosage: 4.8 MG, TID (CYCLE 4)
     Route: 042
     Dates: start: 20170106, end: 20170106
  32. DEXAMETHASONE SODIUM PHOSPHATE. [Concomitant]
     Active Substance: DEXAMETHASONE SODIUM PHOSPHATE
     Dosage: 10 MG, ONCE (STRENGTH: 5MG/ML)
     Route: 042
     Dates: start: 20170114, end: 20170114
  33. LANSTON [Concomitant]
     Active Substance: LANSOPRAZOLE
     Indication: GASTRODUODENITIS
     Dosage: 1 TABLET (15 MG), QD
     Route: 048
     Dates: start: 20160924
  34. EMEND (FOSAPREPITANT DIMEGLUMINE) [Suspect]
     Active Substance: FOSAPREPITANT DIMEGLUMINE
     Dosage: 150 MG, ONCE
     Route: 042
     Dates: start: 20170114, end: 20170114
  35. METHOTREXATE. [Concomitant]
     Active Substance: METHOTREXATE
     Dosage: 48.5MG, QD (CYCLE 3)
     Route: 042
     Dates: start: 20161124, end: 20161208
  36. METHOTREXATE. [Concomitant]
     Active Substance: METHOTREXATE
     Dosage: 48.5MG, TID (CYCLE 4)
     Route: 042
     Dates: start: 20161216, end: 20161216
  37. METHOTREXATE. [Concomitant]
     Active Substance: METHOTREXATE
     Dosage: 49MG, TID (CYCLE 5)
     Route: 042
     Dates: start: 20170118, end: 20170118
  38. DEXAMETHASONE. [Concomitant]
     Active Substance: DEXAMETHASONE
     Dosage: 8 MG, ONCE
     Route: 048
     Dates: start: 20161218, end: 20161218
  39. DEXAMETHASONE. [Concomitant]
     Active Substance: DEXAMETHASONE
     Dosage: 8 MG, QD
     Route: 048
     Dates: start: 20170115, end: 20170117
  40. DOXORUBICIN HYDROCHLORIDE. [Concomitant]
     Active Substance: DOXORUBICIN HYDROCHLORIDE
     Indication: MALIGNANT NEOPLASM OF RENAL PELVIS
     Dosage: 48 MG, ONCE (CYCLE 3) (STRENGTH: 50MG/25ML)
     Route: 042
     Dates: start: 20161119, end: 20161119
  41. METHOTREXATE. [Concomitant]
     Active Substance: METHOTREXATE
     Dosage: 48.5MG, QD (CYCLE 3)
     Route: 042
     Dates: start: 20161118, end: 20161122
  42. METHOTREXATE. [Concomitant]
     Active Substance: METHOTREXATE
     Dosage: 49 MG, TID (CYCLE 5)
     Route: 042
     Dates: start: 20170113, end: 20170113
  43. DEXAMETHASONE SODIUM PHOSPHATE. [Concomitant]
     Active Substance: DEXAMETHASONE SODIUM PHOSPHATE
     Indication: PREMEDICATION
     Dosage: 10 MG, ONCE (STRENGTH: 5MG/ML)
     Route: 042
     Dates: start: 20161119, end: 20161119
  44. DEXAMETHASONE SODIUM PHOSPHATE. [Concomitant]
     Active Substance: DEXAMETHASONE SODIUM PHOSPHATE
     Dosage: 10 MG, ONCE (STRENGTH: 5MG/ML)
     Route: 042
     Dates: start: 20161217, end: 20161217
  45. SANCUSO [Concomitant]
     Active Substance: GRANISETRON
     Dosage: 1 PK, QD (STRENGTH: 80.2X66.6MM2), ROUTE REPORTED AS PATCH
     Dates: start: 20170112, end: 20170114
  46. DOXORUBICIN HYDROCHLORIDE. [Concomitant]
     Active Substance: DOXORUBICIN HYDROCHLORIDE
     Dosage: 48 MG, ONCE (CYCLE 5) (STRENGTH: 50MG/25ML)
     Route: 042
     Dates: start: 20170114, end: 20170114
  47. CISPLATIN. [Concomitant]
     Active Substance: CISPLATIN
     Dosage: 97 MG, ONCE (CYCLE 5) (STRENGTH: 50MG/100ML)
     Route: 042
     Dates: start: 20170114, end: 20170114

REACTIONS (4)
  - Musculoskeletal chest pain [Recovered/Resolved]
  - C-reactive protein increased [Recovered/Resolved]
  - Abdominal pain [Recovered/Resolved]
  - Diarrhoea [Recovered/Resolved]

NARRATIVE: CASE EVENT DATE: 20161202
